FAERS Safety Report 7480799-0 (Version None)
Quarter: 2011Q2

REPORT INFORMATION
  Report Type: 
  Country: None (occurrence: None)
  Receive Date: 20110506
  Receipt Date: 20110421
  Transmission Date: 20111010
  Serious: Yes (Other)
  Sender: FDA-Public Use
  Company Number: 2010CP000328

PATIENT
  Age: 3 Year
  Sex: Female

DRUGS (3)
  1. DIPYRONE INJ [Concomitant]
  2. ACETAMINOPHEN [Suspect]
     Indication: INFLUENZA LIKE ILLNESS
     Dosage: 12 ML; 1/6 HOUR; IV
     Route: 042
     Dates: start: 20101201, end: 20101201
  3. HYDROSOL POLYVITAMINE (MULTIPLE VITAMINS) [Concomitant]

REACTIONS (3)
  - TONIC CONVULSION [None]
  - INFUSION RELATED REACTION [None]
  - CHILLS [None]
